FAERS Safety Report 12916127 (Version 1)
Quarter: 2016Q4

REPORT INFORMATION
  Report Type: Spontaneous
  Country: BE (occurrence: BE)
  Receive Date: 20161107
  Receipt Date: 20161107
  Transmission Date: 20170207
  Serious: Yes (Death, Hospitalization)
  Sender: FDA-Public Use
  Company Number: BE-CIPLA LTD.-2016BE13839

PATIENT
  Age: 71 Year
  Sex: Female

DRUGS (1)
  1. GEMCITABINE [Suspect]
     Active Substance: GEMCITABINE\GEMCITABINE HYDROCHLORIDE
     Indication: PANCREATIC CARCINOMA
     Dosage: 2700 MG, BY A 30-MIN INFUSION
     Route: 042

REACTIONS (2)
  - Thrombotic thrombocytopenic purpura [Unknown]
  - Death [Fatal]
